FAERS Safety Report 9376317 (Version 1)
Quarter: 2013Q2

REPORT INFORMATION
  Report Type: Spontaneous
  Country: US (occurrence: None)
  Receive Date: 20130628
  Receipt Date: 20130628
  Transmission Date: 20140414
  Serious: Yes (Life-Threatening)
  Sender: FDA-Public Use
  Company Number: None

PATIENT
  Age: 6 Month
  Sex: Male
  Weight: 8 kg

DRUGS (1)
  1. GADAVIST [Suspect]
     Indication: MENINGITIS
     Route: 042
     Dates: start: 20130627, end: 20130627

REACTIONS (3)
  - Urticaria [None]
  - Wheezing [None]
  - Respiratory failure [None]
